FAERS Safety Report 7471068-3 (Version None)
Quarter: 2011Q2

REPORT INFORMATION
  Report Type: 
  Country: None (occurrence: None)
  Receive Date: 20110510
  Receipt Date: 20110427
  Transmission Date: 20111010
  Serious: Yes (Other)
  Sender: FDA-Public Use
  Company Number: CA-JNJFOC-20110412544

PATIENT
  Sex: Male
  Weight: 75 kg

DRUGS (5)
  1. REMICADE [Suspect]
     Indication: RHEUMATOID ARTHRITIS
     Route: 042
  2. PARIET [Concomitant]
  3. CLONAZEPAM [Concomitant]
  4. METHOTREXATE [Concomitant]
  5. ATENOLOL [Concomitant]

REACTIONS (3)
  - LUNG NEOPLASM [None]
  - INFUSION RELATED REACTION [None]
  - CHEST PAIN [None]
